FAERS Safety Report 5029202-0 (Version None)
Quarter: 2006Q2

REPORT INFORMATION
  Report Type: 
  Country: None (occurrence: None)
  Receive Date: 20060616
  Receipt Date: 20060616
  Transmission Date: 20061013
  Serious: Yes (Life-Threatening, Hospitalization, Disabling)
  Sender: FDA-Public Use
  Company Number: None

PATIENT
  Age: 59 Year
  Sex: Male
  Weight: 87 kg

DRUGS (22)
  1. CUBICIN [Suspect]
     Indication: ENDOCARDITIS
     Dosage: 520 MG  Q 48 HR  IV
     Route: 042
     Dates: start: 20060407, end: 20060421
  2. CUBICIN [Suspect]
     Indication: ENTEROCOCCAL INFECTION
     Dosage: 520 MG  Q 48 HR  IV
     Route: 042
     Dates: start: 20060407, end: 20060421
  3. ASPIRIN [Concomitant]
  4. APRESOLLINE [Concomitant]
  5. CATAPRES [Concomitant]
  6. ELAVIL [Concomitant]
  7. FLOMAX [Concomitant]
  8. PROTONIX [Concomitant]
  9. PROCRIT [Concomitant]
  10. DIFLUCAN [Concomitant]
  11. MAXIPIME [Concomitant]
  12. NEURONTIN [Concomitant]
  13. GENTAMICIN [Concomitant]
  14. ZESTRIL [Concomitant]
  15. DOLOPHINE [Concomitant]
  16. NORMAL SALINE [Concomitant]
  17. LOPRESSOR [Concomitant]
  18. MULTI-VITAMINS [Concomitant]
  19. REGULR INSULIN SLIDING SCALE [Concomitant]
  20. RESTORIL [Concomitant]
  21. LORTAB [Concomitant]
  22. VENTOLIN [Concomitant]

REACTIONS (5)
  - COMPLEX REGIONAL PAIN SYNDROME [None]
  - DEEP VEIN THROMBOSIS [None]
  - HAEMODIALYSIS [None]
  - PAIN IN EXTREMITY [None]
  - RENAL FAILURE ACUTE [None]
